FAERS Safety Report 26026540 (Version 2)
Quarter: 2025Q4

REPORT INFORMATION
  Report Type: Spontaneous
  Country: US (occurrence: US)
  Receive Date: 20251111
  Receipt Date: 20251124
  Transmission Date: 20260118
  Serious: No
  Sender: SANOFI AVENTIS
  Company Number: US-SANOFI-02711725

PATIENT
  Age: 75 Year
  Sex: Female
  Weight: 44.4 kg

DRUGS (1)
  1. LUMIZYME [Suspect]
     Active Substance: ALGLUCOSIDASE ALFA
     Dosage: 900 MG
     Route: 065

REACTIONS (1)
  - No adverse event [Not Recovered/Not Resolved]
